FAERS Safety Report 13483789 (Version 2)
Quarter: 2017Q2

REPORT INFORMATION
  Report Type: Spontaneous
  Country: US (occurrence: US)
  Receive Date: 20170426
  Receipt Date: 20170513
  Transmission Date: 20170830
  Serious: Yes (Death, Hospitalization, Other)
  Sender: FDA-Public Use
  Company Number: US-ACCORD-050701

PATIENT
  Age: 31 Year
  Sex: Male

DRUGS (1)
  1. ITRACONAZOLE. [Suspect]
     Active Substance: ITRACONAZOLE
     Indication: BLASTOMYCOSIS

REACTIONS (3)
  - Cardiotoxicity [Fatal]
  - Cardiac arrest [Fatal]
  - Acute left ventricular failure [Not Recovered/Not Resolved]
